FAERS Safety Report 5104718-7 (Version None)
Quarter: 2006Q3

REPORT INFORMATION
  Report Type: 
  Country: None (occurrence: None)
  Receive Date: 20060731
  Receipt Date: 20050623
  Transmission Date: 20061208
  Serious: Yes (Other)
  Sender: FDA-Public Use
  Company Number: US-JNJFOC-20050502055

PATIENT
  Age: 45 Year
  Sex: Male
  Weight: 99.7913 kg

DRUGS (3)
  1. RISPERDAL [Suspect]
     Indication: PARANOIA
     Dosage: 4 MG
  2. RISPERDAL [Suspect]
     Indication: SCHIZOPHRENIA
     Dosage: 4 MG
  3. SEROQUEL [Concomitant]

REACTIONS (1)
  - GRAND MAL CONVULSION [None]
